FAERS Safety Report 5018859-6 (Version None)
Quarter: 2006Q2

REPORT INFORMATION
  Report Type: 
  Country: None (occurrence: None)
  Receive Date: 20060531
  Receipt Date: 20060522
  Transmission Date: 20061013
  Serious: Yes (Hospitalization)
  Sender: FDA-Public Use
  Company Number: 224727

PATIENT
  Age: 76 Year
  Sex: Female
  Weight: 54.4 kg

DRUGS (13)
  1. AVASTIN [Suspect]
     Indication: NON-SMALL CELL LUNG CANCER
     Dosage: 810 MG, INTRAVENOUS
     Route: 042
     Dates: start: 20060406
  2. ALIMTA [Suspect]
     Indication: NON-SMALL CELL LUNG CANCER
     Dosage: 739 MG, INTRAVENOUS
     Route: 042
     Dates: start: 20060406
  3. CARBOPLATIN [Suspect]
     Indication: NON-SMALL CELL LUNG CANCER
     Dosage: 556 MG, INTRAVENOUS
     Route: 042
     Dates: start: 20060406
  4. ALBUTEROL (ALBUTEROL/ALBUTEROL SULFATE) [Concomitant]
  5. ADVAIR DISKUS 100/50 [Concomitant]
  6. FOSAMAX [Concomitant]
  7. DECADRON SRC [Concomitant]
  8. MULTIVITAMIN         (MULTIVITAMINS NOS) [Concomitant]
  9. SPIRIVA [Concomitant]
  10. LEVOTHYROXINE SODIUM [Concomitant]
  11. FOLIC ACID [Concomitant]
  12. EMEND [Concomitant]
  13. ZOFRAN [Concomitant]

REACTIONS (22)
  - ADRENAL DISORDER [None]
  - ANAEMIA [None]
  - ARTERIOSCLEROSIS [None]
  - BLISTER [None]
  - COUGH [None]
  - DEHYDRATION [None]
  - DIZZINESS [None]
  - DYSPNOEA EXERTIONAL [None]
  - GRANULOMATOUS LIVER DISEASE [None]
  - HYPOCHROMASIA [None]
  - INSOMNIA [None]
  - LUNG DISORDER [None]
  - LUNG HYPERINFLATION [None]
  - LUNG INFILTRATION [None]
  - LYMPHADENOPATHY [None]
  - NEUTROPENIA [None]
  - PLATELET COUNT DECREASED [None]
  - PLATELET COUNT INCREASED [None]
  - POLYCHROMASIA [None]
  - RED BLOOD CELL MACROCYTES PRESENT [None]
  - SCAR [None]
  - WHITE BLOOD CELL COUNT DECREASED [None]
